FAERS Safety Report 11421513 (Version 1)
Quarter: 2015Q3

REPORT INFORMATION
  Report Type: Spontaneous
  Country: US (occurrence: US)
  Receive Date: 20150826
  Receipt Date: 20150826
  Transmission Date: 20151125
  Serious: No
  Sender: FDA-Public Use
  Company Number: US-009507513-1508USA010426

PATIENT

DRUGS (1)
  1. ZERBAXA [Suspect]
     Active Substance: CEFTOLOZANE SULFATE\TAZOBACTAM SODIUM
     Dosage: 1.5 G, Q8H
     Route: 042
     Dates: start: 20150818

REACTIONS (2)
  - Incorrect product storage [Unknown]
  - No adverse event [Unknown]

NARRATIVE: CASE EVENT DATE: 20150818
